FAERS Safety Report 15297590 (Version 5)
Quarter: 2018Q4

REPORT INFORMATION
  Report Type: Report from Study
  Country: US (occurrence: US)
  Receive Date: 20180820
  Receipt Date: 20181113
  Transmission Date: 20190204
  Serious: Yes (Other)
  Sender: FDA-Public Use
  Company Number: US-PFIZER INC-2018243309

PATIENT
  Age: 58 Year
  Sex: Female

DRUGS (2)
  1. IBRANCE [Suspect]
     Active Substance: PALBOCICLIB
     Indication: BREAST CANCER FEMALE
     Dosage: 125 MG, 1X/DAY
     Route: 048
     Dates: start: 20180503
  2. IBRANCE [Suspect]
     Active Substance: PALBOCICLIB
     Dosage: 125 MG, CYCLIC (21 DAYS ON/7 DAYS OFF/ONCE A DAY)
     Route: 048
     Dates: start: 20180530

REACTIONS (29)
  - Hyperaesthesia [Unknown]
  - Pain of skin [Unknown]
  - Skin lesion [Unknown]
  - Neuropathy peripheral [Recovering/Resolving]
  - Fatigue [Not Recovered/Not Resolved]
  - Stomatitis [Not Recovered/Not Resolved]
  - Pruritus generalised [Unknown]
  - Nausea [Recovered/Resolved]
  - Vision blurred [Unknown]
  - Blister [Recovering/Resolving]
  - Gingival swelling [Unknown]
  - Impaired healing [Unknown]
  - Dry skin [Unknown]
  - Dizziness [Recovered/Resolved]
  - Dysuria [Unknown]
  - Alopecia [Unknown]
  - Anxiety [Unknown]
  - Hair texture abnormal [Unknown]
  - Rash pruritic [Unknown]
  - Vertigo [Unknown]
  - Constipation [Not Recovered/Not Resolved]
  - Pruritus [Recovered/Resolved]
  - Madarosis [Unknown]
  - Skin discolouration [Not Recovered/Not Resolved]
  - Feeling abnormal [Unknown]
  - White blood cell count decreased [Unknown]
  - Arthralgia [Recovering/Resolving]
  - Dyspnoea [Not Recovered/Not Resolved]
  - Blood glucose increased [Unknown]

NARRATIVE: CASE EVENT DATE: 2018
